FAERS Safety Report 11896879 (Version 1)
Quarter: 2016Q1

REPORT INFORMATION
  Report Type: Spontaneous
  Country: US (occurrence: US)
  Receive Date: 20160107
  Receipt Date: 20160107
  Transmission Date: 20160526
  Serious: No
  Sender: FDA-Public Use
  Company Number: US-ALLERGAN-1503346US

PATIENT
  Age: 53 Year
  Sex: Female

DRUGS (5)
  1. ACZONE [Suspect]
     Active Substance: DAPSONE
     Indication: ROSACEA
     Dosage: UNK
     Dates: start: 201412
  2. METROGEL [Suspect]
     Active Substance: METRONIDAZOLE
     Indication: ROSACEA
     Dosage: UNK
     Route: 061
     Dates: start: 201412
  3. ORACEA [Concomitant]
     Active Substance: DOXYCYCLINE
     Indication: PRODUCT USED FOR UNKNOWN INDICATION
     Dosage: 40 MG, QD
     Route: 048
     Dates: start: 20150203
  4. METROGEL [Suspect]
     Active Substance: METRONIDAZOLE
     Dosage: UNK UNK, QD
     Route: 061
     Dates: end: 201412
  5. FINACEA [Concomitant]
     Active Substance: AZELAIC ACID
     Indication: ROSACEA
     Dosage: UNK
     Route: 061
     Dates: end: 201412

REACTIONS (2)
  - Skin irritation [Unknown]
  - Drug ineffective [Unknown]
